FAERS Safety Report 11665006 (Version 3)
Quarter: 2015Q4

REPORT INFORMATION
  Report Type: Spontaneous
  Country: IT (occurrence: IT)
  Receive Date: 20151027
  Receipt Date: 20151111
  Transmission Date: 20160304
  Serious: Yes (Other)
  Sender: FDA-Public Use
  Company Number: IT-ACTAVIS-2015-22611

PATIENT
  Age: 33 Year
  Sex: Female

DRUGS (2)
  1. AMOXICILLIN-CLAVULANIC ACID [Suspect]
     Active Substance: AMOXICILLIN\CLAVULANIC ACID
     Indication: LYMPHADENITIS
     Dosage: 2 DF, DAILY
     Route: 048
     Dates: start: 20150927, end: 20151001
  2. IBUPROFEN. [Suspect]
     Active Substance: IBUPROFEN
     Indication: LYMPHADENITIS
     Dosage: 2 DF, DAILY
     Route: 048
     Dates: start: 20150927, end: 20151001

REACTIONS (3)
  - Hypersensitivity [Recovering/Resolving]
  - Pruritus [Recovering/Resolving]
  - Erythema [Recovering/Resolving]

NARRATIVE: CASE EVENT DATE: 20151001
